FAERS Safety Report 20739708 (Version 1)
Quarter: 2022Q2

REPORT INFORMATION
  Report Type: Spontaneous
  Country: JP (occurrence: JP)
  Receive Date: 20220422
  Receipt Date: 20220422
  Transmission Date: 20220720
  Serious: Yes (Hospitalization)
  Sender: FDA-Public Use
  Company Number: JP-MSD-M2022-00879

PATIENT
  Age: 91 Year
  Sex: Male

DRUGS (11)
  1. MOLNUPIRAVIR [Suspect]
     Active Substance: MOLNUPIRAVIR
     Indication: COVID-19 treatment
     Dosage: 800 MILLIGRAM, BID
     Route: 048
     Dates: start: 20220114, end: 20220118
  2. PANCRELIPASE [Concomitant]
     Active Substance: PANCRELIPASE
     Dosage: UNK
     Route: 065
  3. DIMETHICONE [Concomitant]
     Active Substance: DIMETHICONE
     Dosage: UNK
     Route: 065
  4. MIYA-BM [Concomitant]
     Active Substance: CLOSTRIDIUM BUTYRICUM SPORES STRAIN M-55
     Dosage: UNK
     Route: 065
  5. CARVEDILOL [Concomitant]
     Active Substance: CARVEDILOL
     Dosage: UNK
     Route: 065
  6. NIFEDIPINE [Concomitant]
     Active Substance: NIFEDIPINE
     Dosage: UNK
     Route: 065
  7. CALONAL [Concomitant]
     Active Substance: ACETAMINOPHEN
     Dosage: UNK
     Route: 065
  8. CARBOCYSTEINE [Concomitant]
     Active Substance: CARBOCYSTEINE
     Dosage: UNK
     Route: 065
  9. EPRAZINONE [Concomitant]
     Active Substance: EPRAZINONE
     Dosage: UNK
     Route: 065
  10. BEPOTASTINE BESYLATE [Concomitant]
     Active Substance: BEPOTASTINE BESYLATE
     Dosage: UNK
     Route: 065
  11. POVIDONE-IODINE [Concomitant]
     Active Substance: POVIDONE-IODINE
     Dosage: UNK
     Route: 065

REACTIONS (1)
  - COVID-19 [Unknown]

NARRATIVE: CASE EVENT DATE: 20220115
